FAERS Safety Report 22053623 (Version 1)
Quarter: 2023Q1

REPORT INFORMATION
  Report Type: Spontaneous
  Country: US (occurrence: None)
  Receive Date: 20230301
  Receipt Date: 20230301
  Transmission Date: 20230418
  Serious: Yes (Other)
  Sender: FDA-Public Use
  Company Number: None

PATIENT
  Age: 76 Year
  Sex: Male
  Weight: 91.8 kg

DRUGS (3)
  1. FLEET ENEMA [Suspect]
     Active Substance: SODIUM PHOSPHATE, DIBASIC\SODIUM PHOSPHATE, MONOBASIC
     Indication: Bowel preparation
     Dosage: OTHER QUANTITY : 1 OUNCE(S);?FREQUENCY : AS NEEDED;?
     Route: 054
     Dates: start: 20230227, end: 20230227
  2. NORVASC [Concomitant]
     Active Substance: AMLODIPINE BESYLATE
  3. ZOCOR [Concomitant]
     Active Substance: SIMVASTATIN

REACTIONS (3)
  - Eye pruritus [None]
  - Dyspnoea [None]
  - Urticaria [None]

NARRATIVE: CASE EVENT DATE: 20230227
